FAERS Safety Report 9525098 (Version 2)
Quarter: 2013Q4

REPORT INFORMATION
  Report Type: Spontaneous
  Country: US (occurrence: US)
  Receive Date: 20130916
  Receipt Date: 20131024
  Transmission Date: 20140711
  Serious: Yes (Hospitalization)
  Sender: FDA-Public Use
  Company Number: US-BAYER-2013-111232

PATIENT
  Age: 37 Year
  Sex: Female
  Weight: 79.37 kg

DRUGS (5)
  1. MIRENA [Suspect]
     Dosage: 20 MCG/24HR, CONT
     Route: 015
     Dates: start: 201001, end: 20110909
  2. DIFLUCAN [Concomitant]
     Indication: VULVOVAGINAL MYCOTIC INFECTION
     Dosage: 150 MG, UNK
     Dates: start: 20110826
  3. AMITRIPTYLINE [Concomitant]
     Dosage: 10 MG; 20 MG
  4. IBUPROFEN [Concomitant]
     Dosage: 200 MG, UNK
  5. ULTRAM [Concomitant]
     Dosage: 50 MG, UNK

REACTIONS (4)
  - Device dislocation [None]
  - Injury [None]
  - Pain [None]
  - Emotional distress [None]
